FAERS Safety Report 16679659 (Version 2)
Quarter: 2019Q3

REPORT INFORMATION
  Report Type: Spontaneous
  Country: IN (occurrence: IN)
  Receive Date: 20190807
  Receipt Date: 20190809
  Transmission Date: 20191004
  Serious: Yes (Other)
  Sender: FDA-Public Use
  Company Number: IN-PFIZER INC-2019333522

PATIENT
  Age: 55 Year
  Sex: Male

DRUGS (3)
  1. FLUCONAZOLE. [Suspect]
     Active Substance: FLUCONAZOLE
     Indication: BODY TINEA
     Dosage: 150 MG, WEEKLY (TABLET)
  2. ITRACONAZOLE. [Concomitant]
     Active Substance: ITRACONAZOLE
     Indication: BODY TINEA
     Dosage: 100 MG, 2X/DAY
  3. MICONAZOLE. [Concomitant]
     Active Substance: MICONAZOLE
     Indication: BODY TINEA
     Dosage: UNK (TOPICAL 2% MICONAZOLE CREAM)
     Route: 061

REACTIONS (2)
  - Dermatitis bullous [Recovered/Resolved]
  - Fixed eruption [Recovered/Resolved]
